FAERS Safety Report 9095563 (Version 2)
Quarter: 2013Q1

REPORT INFORMATION
  Report Type: Spontaneous
  Country: GB (occurrence: GB)
  Receive Date: 20130219
  Receipt Date: 20130225
  Transmission Date: 20140127
  Serious: Yes (Hospitalization, Congenital Anomaly)
  Sender: FDA-Public Use
  Company Number: PHHY2013GB014390

PATIENT
  Sex: Male

DRUGS (2)
  1. WARFARIN [Suspect]
     Route: 064
  2. ENOXAPARIN SODIUM [Suspect]
     Route: 064

REACTIONS (16)
  - Sepsis neonatal [Recovered/Resolved]
  - Coagulopathy [Recovered/Resolved]
  - Foetal hypokinesia [Recovered/Resolved]
  - Neonatal hypotension [Recovered/Resolved]
  - Metabolic acidosis [Recovered/Resolved]
  - Hyperlactacidaemia [Recovered/Resolved]
  - Foetal-maternal haemorrhage [Recovered/Resolved]
  - Haemodynamic instability [Recovered/Resolved]
  - Thrombocytopenia [Recovered/Resolved]
  - Oxygen saturation decreased [Recovered/Resolved]
  - Premature baby [Unknown]
  - Anaemia [Recovered/Resolved]
  - Foetal warfarin syndrome [Recovered/Resolved]
  - Coarctation of the aorta [Recovered/Resolved]
  - Ventricular septal defect [Recovered/Resolved]
  - Foetal exposure during pregnancy [Unknown]
